FAERS Safety Report 7516138-6 (Version None)
Quarter: 2011Q2

REPORT INFORMATION
  Report Type: 
  Country: None (occurrence: None)
  Receive Date: 20110520
  Receipt Date: 20110509
  Transmission Date: 20111010
  Serious: Yes (Hospitalization)
  Sender: FDA-Public Use
  Company Number: UTC-006955

PATIENT
  Age: 55 Year
  Sex: Female
  Weight: 74.09 kg

DRUGS (1)
  1. TYVASO [Suspect]
     Dosage: 96 MCG (24 MCG,4 IN 1 D),INHALATION
     Route: 055
     Dates: start: 20110414, end: 20110502

REACTIONS (1)
  - OEDEMA [None]
